FAERS Safety Report 4929833-X (Version None)
Quarter: 2006Q1

REPORT INFORMATION
  Report Type: 
  Country: None (occurrence: None)
  Receive Date: 20060127
  Receipt Date: 20051017
  Transmission Date: 20060701
  Serious: Yes (Other)
  Sender: FDA-Public Use
  Company Number: 2005143971

PATIENT
  Age: 51 Year
  Sex: Female
  Weight: 76.2043 kg

DRUGS (12)
  1. LYRICA [Suspect]
     Indication: NEUROPATHY PERIPHERAL
     Dosage: 50 MG (50 MG 1 IN 1 D) ORAL
     Route: 048
     Dates: start: 20051012
  2. LUNESTA [Concomitant]
  3. ACTOS [Concomitant]
  4. VERAPAMIL [Concomitant]
  5. SEROQUEL [Concomitant]
  6. CYMBALTA [Concomitant]
  7. ZANAFLEX [Concomitant]
  8. LIPITOR [Concomitant]
  9. BACLOFEN [Concomitant]
  10. PRILOSEC [Concomitant]
  11. VICODIN [Concomitant]
  12. CELEBREX [Concomitant]

REACTIONS (2)
  - DRUG INEFFECTIVE [None]
  - HYPOAESTHESIA [None]
